FAERS Safety Report 5117639-0 (Version None)
Quarter: 2006Q3

REPORT INFORMATION
  Report Type: 
  Country: None (occurrence: None)
  Receive Date: 20060929
  Receipt Date: 20060926
  Transmission Date: 20061208
  Serious: Yes (Hospitalization)
  Sender: FDA-Public Use
  Company Number: GB-ABBOTT-06P-167-0344923-00

PATIENT
  Age: 38 Year
  Sex: Male

DRUGS (4)
  1. LOPINAVIR/RITONAVIR [Suspect]
     Indication: HIV INFECTION
     Dosage: NOT REPORTED
  2. RITONAVIR [Suspect]
     Indication: HIV INFECTION
     Dosage: NOT REPORTED
  3. FOSAMPRENAVIR [Suspect]
     Indication: HIV INFECTION
     Dosage: NOT REPORTED
  4. TENOFOVIR [Suspect]
     Indication: HIV INFECTION
     Dosage: NOT REPORTED

REACTIONS (4)
  - IMMUNE RECONSTITUTION SYNDROME [None]
  - KAPOSI'S SARCOMA [None]
  - LYMPHOEDEMA [None]
  - MOBILITY DECREASED [None]
